FAERS Safety Report 8194370-9 (Version None)
Quarter: 2012Q1

REPORT INFORMATION
  Report Type: 
  Country: None (occurrence: None)
  Receive Date: 20120308
  Receipt Date: 20120301
  Transmission Date: 20120608
  Serious: Yes (Other)
  Sender: FDA-Public Use
  Company Number: US-ABBOTT-12P-163-0911564-00

PATIENT
  Weight: 79.45 kg

DRUGS (6)
  1. LISINOPRIL [Suspect]
     Indication: HYPERTENSION
  2. WELLBUTRIN [Concomitant]
     Indication: BIPOLAR DISORDER
     Dates: start: 19970101
  3. DEPAKOTE ER [Suspect]
     Dates: start: 19970101, end: 20020101
  4. DEPAKOTE [Suspect]
     Indication: BIPOLAR DISORDER
     Dates: start: 20020101, end: 20110801
  5. DEPAKOTE ER [Suspect]
     Indication: BIPOLAR DISORDER
     Dates: start: 19970101, end: 19970101
  6. LITHIUM CARBONATE [Concomitant]
     Indication: BIPOLAR DISORDER
     Dates: start: 19970101

REACTIONS (7)
  - HEADACHE [None]
  - DIZZINESS [None]
  - VISION BLURRED [None]
  - HYPERTENSION [None]
  - WITHDRAWAL SYNDROME [None]
  - FATIGUE [None]
  - DRUG INEFFECTIVE [None]
